FAERS Safety Report 25257266 (Version 1)
Quarter: 2025Q2

REPORT INFORMATION
  Report Type: Report from Study
  Country: US (occurrence: US)
  Receive Date: 20250430
  Receipt Date: 20250430
  Transmission Date: 20250716
  Serious: Yes (Hospitalization)
  Sender: ALEXION PHARMACEUTICALS
  Company Number: US-ASTRAZENECA-202504USA022410US

PATIENT
  Age: 44 Year

DRUGS (1)
  1. STRENSIQ [Suspect]
     Active Substance: ASFOTASE ALFA
     Indication: Phosphorus metabolism disorder
     Dosage: 120 MILLIGRAM, TIW
     Route: 065

REACTIONS (6)
  - Limb injury [Recovered/Resolved]
  - Fall [Recovered/Resolved]
  - Skin laceration [Recovered/Resolved]
  - Joint dislocation [Recovered/Resolved]
  - Blood pressure increased [Recovered/Resolved]
  - Vitamin D decreased [Recovered/Resolved]
